FAERS Safety Report 9233533 (Version 1)
Quarter: 2013Q2

REPORT INFORMATION
  Report Type: Report from Study
  Country: US (occurrence: US)
  Receive Date: 20130416
  Receipt Date: 20130416
  Transmission Date: 20140414
  Serious: Yes (Death, Hospitalization, Other)
  Sender: FDA-Public Use
  Company Number: US-GENZYME-CLOF-1002587

PATIENT
  Age: 73 Year
  Sex: Male
  Weight: 98.1 kg

DRUGS (2)
  1. CLOLAR [Suspect]
     Indication: ACUTE MYELOID LEUKAEMIA
     Dosage: 30 MG/M2, UNK, CYCLE 01 INDUCTION
     Route: 065
     Dates: start: 20130305, end: 20130309
  2. CLOLAR [Suspect]
     Dosage: 20 MG/M2, UNK, CYCLE 02 INDUCTION
     Route: 065
     Dates: start: 20130325, end: 20130329

REACTIONS (8)
  - Haemorrhagic stroke [Fatal]
  - Brain herniation [Fatal]
  - Cardiac arrest [Recovered/Resolved]
  - Atrial fibrillation [Unknown]
  - Platelet count decreased [Recovered/Resolved]
  - Febrile neutropenia [Unknown]
  - Hyperbilirubinaemia [Unknown]
  - Oedema [Unknown]
